FAERS Safety Report 24075744 (Version 2)
Quarter: 2024Q4

REPORT INFORMATION
  Report Type: Report from Study
  Country: CA (occurrence: CA)
  Receive Date: 20240710
  Receipt Date: 20241028
  Transmission Date: 20250114
  Serious: Yes (Hospitalization, Other)
  Sender: BAUSCH AND LOMB
  Company Number: CA-BAUSCH-BL-2024-010405

PATIENT
  Age: 47 Year
  Sex: Male

DRUGS (5)
  1. SILIQ [Suspect]
     Active Substance: BRODALUMAB
     Indication: Psoriasis
     Dosage: 210MG/1.5ML, WEEKLY
     Route: 058
     Dates: start: 20200708, end: 202007
  2. SILIQ [Suspect]
     Active Substance: BRODALUMAB
     Dosage: 210MG/1.5ML, Q2 WEEKS
     Route: 058
     Dates: end: 202310
  3. RABEPRAZOLE [Concomitant]
     Active Substance: RABEPRAZOLE
     Indication: Product used for unknown indication
  4. TYLENOL [Concomitant]
     Active Substance: ACETAMINOPHEN
     Indication: Product used for unknown indication
  5. ADVIL [Concomitant]
     Active Substance: IBUPROFEN
     Indication: Product used for unknown indication

REACTIONS (6)
  - Cirrhosis alcoholic [Unknown]
  - Coma [Recovered/Resolved]
  - Ankylosing spondylitis [Not Recovered/Not Resolved]
  - Weight increased [Unknown]
  - Psoriasis [Not Recovered/Not Resolved]
  - Disease recurrence [Not Recovered/Not Resolved]

NARRATIVE: CASE EVENT DATE: 20240101
